FAERS Safety Report 8306213-0 (Version None)
Quarter: 2012Q2

REPORT INFORMATION
  Report Type: 
  Country: None (occurrence: None)
  Receive Date: 20120423
  Receipt Date: 20120419
  Transmission Date: 20120825
  Serious: No
  Sender: FDA-Public Use
  Company Number: US-B.I. PHARMACEUTICALS,INC./RIDGEFIELD-2012-BP-07472BP

PATIENT
  Sex: Female

DRUGS (16)
  1. CENTRUM VITAMIN [Concomitant]
     Indication: PROPHYLAXIS
     Route: 048
  2. VITAMIN D [Concomitant]
     Indication: PROPHYLAXIS
     Route: 048
  3. CLARINEX [Concomitant]
     Indication: HYPERSENSITIVITY
     Route: 048
  4. PROAIR HFA [Concomitant]
     Indication: ASTHMA
     Route: 055
  5. VITAMIN B-12 [Concomitant]
     Indication: PROPHYLAXIS
     Route: 048
  6. ASTEPRO [Concomitant]
     Indication: HYPERSENSITIVITY
     Dosage: 4 PUF
     Route: 045
  7. DETROL LA [Concomitant]
     Dosage: 8 MG
     Route: 048
  8. LIPITOR [Concomitant]
     Indication: BLOOD CHOLESTEROL INCREASED
     Dosage: 10 MG
     Route: 048
  9. ADVAIR DISKUS 100/50 [Concomitant]
     Indication: ASTHMA
     Dosage: 4 PUF
     Route: 055
     Dates: start: 20120101
  10. LEXAPRO [Concomitant]
     Dosage: 10 MG
     Route: 048
  11. VITAMIN E [Concomitant]
     Indication: PROPHYLAXIS
     Route: 048
  12. ALLEGRA [Concomitant]
     Indication: HYPERSENSITIVITY
     Dosage: 90 MG
     Route: 048
     Dates: start: 20120101
  13. SPIRIVA [Suspect]
     Indication: ASTHMA
     Dosage: 18 MCG
     Route: 055
     Dates: start: 20120403, end: 20120415
  14. AVAPRO [Concomitant]
     Indication: HYPERTENSION
     Dosage: 300 MG
     Route: 048
  15. CALCIUM [Concomitant]
     Indication: PROPHYLAXIS
     Dosage: 1000 MG
     Route: 048
  16. ASPIRIN [Concomitant]
     Indication: PROPHYLAXIS
     Dosage: 325 MG
     Route: 048
     Dates: start: 19950601

REACTIONS (3)
  - DIZZINESS [None]
  - OFF LABEL USE [None]
  - VISION BLURRED [None]
